FAERS Safety Report 25387946 (Version 1)
Quarter: 2025Q2

REPORT INFORMATION
  Report Type: Spontaneous
  Country: AU (occurrence: AU)
  Receive Date: 20250603
  Receipt Date: 20250603
  Transmission Date: 20250716
  Serious: Yes (Hospitalization)
  Sender: AMGEN
  Company Number: AU-AMGEN-AUSSP2025104980

PATIENT
  Age: 61 Year
  Sex: Female

DRUGS (5)
  1. TRASTUZUMAB [Suspect]
     Active Substance: TRASTUZUMAB
     Indication: Breast cancer metastatic
     Dosage: 735 MILLIGRAM, Q3WK
     Route: 040
     Dates: start: 20230907
  2. PEMBROLIZUMAB [Suspect]
     Active Substance: PEMBROLIZUMAB
     Indication: Breast cancer metastatic
     Dosage: 200 MILLIGRAM, Q3WK
     Route: 040
     Dates: start: 20230907
  3. CAPECITABINE [Suspect]
     Active Substance: CAPECITABINE
     Indication: Breast cancer metastatic
     Dosage: 1950 MILLIGRAM, QD
     Route: 048
     Dates: start: 20230907
  4. TUCATINIB [Suspect]
     Active Substance: TUCATINIB
     Indication: Breast cancer metastatic
     Dosage: 300 MILLIGRAM, QD
     Route: 048
     Dates: start: 20230907, end: 20230922
  5. TUCATINIB [Suspect]
     Active Substance: TUCATINIB
     Dosage: 250 MILLIGRAM, QD
     Route: 048
     Dates: start: 20231011, end: 20231028

REACTIONS (3)
  - Pyrexia [Recovered/Resolved]
  - Alanine aminotransferase increased [Recovered/Resolved]
  - Overdose [Recovered/Resolved]

NARRATIVE: CASE EVENT DATE: 20230907
